FAERS Safety Report 8430359-X (Version None)
Quarter: 2012Q2

REPORT INFORMATION
  Report Type: 
  Country: None (occurrence: None)
  Receive Date: 20120612
  Receipt Date: 20120530
  Transmission Date: 20120825
  Serious: No
  Sender: FDA-Public Use
  Company Number: US-ASTRAZENECA-2012SE35746

PATIENT
  Age: 72 Year
  Sex: Male
  Weight: 72.6 kg

DRUGS (2)
  1. PULMICORT FLEXHALER [Suspect]
     Dosage: 180 MCG 2 PUFF TWICE A DAY
     Route: 055
  2. PULMICORT FLEXHALER [Suspect]
     Dosage: 180 MCG 3 PUFF TWICE A DAY
     Route: 055

REACTIONS (3)
  - BRONCHIECTASIS [None]
  - DYSPHONIA [None]
  - OFF LABEL USE [None]
